FAERS Safety Report 5892657-3 (Version None)
Quarter: 2008Q3

REPORT INFORMATION
  Report Type: 
  Country: None (occurrence: None)
  Receive Date: 20080923
  Receipt Date: 20080915
  Transmission Date: 20090109
  Serious: Yes (Hospitalization)
  Sender: FDA-Public Use
  Company Number: PHHY2008IT20700

PATIENT
  Age: 70 Year
  Sex: Female

DRUGS (2)
  1. EXJADE [Suspect]
  2. TRANSFUSIONS [Concomitant]
     Dosage: 450 ML, QHS

REACTIONS (2)
  - ABDOMINAL PAIN [None]
  - OVERDOSE [None]
